FAERS Safety Report 4865888-9 (Version None)
Quarter: 2005Q4

REPORT INFORMATION
  Report Type: 
  Country: None (occurrence: None)
  Receive Date: 20051223
  Receipt Date: 20041124
  Transmission Date: 20060501
  Serious: Yes (Death)
  Sender: FDA-Public Use
  Company Number: PHBS2004NZ15754

PATIENT
  Age: 47 Year
  Sex: Male
  Weight: 118 kg

DRUGS (1)
  1. CLOZARIL [Suspect]
     Indication: SCHIZOPHRENIA
     Route: 048
     Dates: start: 20041109

REACTIONS (8)
  - AGITATION [None]
  - BLOOD CREATINE PHOSPHOKINASE INCREASED [None]
  - CIRCULATORY COLLAPSE [None]
  - FALL [None]
  - MYOCARDIAL INFARCTION [None]
  - MYOCARDITIS [None]
  - PYREXIA [None]
  - TROPONIN I INCREASED [None]
